FAERS Safety Report 7408199-X (Version None)
Quarter: 2011Q2

REPORT INFORMATION
  Report Type: 
  Country: None (occurrence: None)
  Receive Date: 20110412
  Receipt Date: 20110215
  Transmission Date: 20111010
  Serious: Yes (Hospitalization, Other)
  Sender: FDA-Public Use
  Company Number: US-BAYER-201032907NA

PATIENT
  Age: 21 Year
  Sex: Female
  Weight: 97.506 kg

DRUGS (3)
  1. AMBIEN [Concomitant]
     Indication: ANXIETY
     Dosage: UNK
     Dates: start: 20070101
  2. YASMIN [Suspect]
     Indication: PRODUCT USED FOR UNKNOWN INDICATION
     Dosage: 1 TAB/DAY
     Dates: start: 20060401
  3. LORAZEPAM [Concomitant]
     Indication: ANXIETY
     Dosage: UNK
     Dates: start: 20070101

REACTIONS (3)
  - GALLBLADDER INJURY [None]
  - CHOLELITHIASIS [None]
  - CHOLECYSTITIS ACUTE [None]
